FAERS Safety Report 8816682 (Version 1)
Quarter: 2012Q4

REPORT INFORMATION
  Report Type: 
  Country: US (occurrence: None)
  Receive Date: 20120928
  Receipt Date: 20120928
  Transmission Date: 20130627
  Serious: Yes (Hospitalization)
  Sender: FDA-Public Use
  Company Number: HCDA20120085

PATIENT
  Age: 27 Year
  Sex: Female

DRUGS (4)
  1. HYDROCODONE + ACETAMINOPHEN [Suspect]
     Indication: PRODUCT USED FOR UNKNOWN INDICATION
     Dosage: 5mg/500mg, 30 to 40 tablets a day, Oral
     Route: 048
  2. CARISOPRODOL [Suspect]
     Indication: PRODUCT USED FOR UNKNOWN INDICATION
     Dosage: 350 mg, 15 to 20 tablets a day, Oral
     Route: 048
  3. METOCLOPRAMIDE HYDROCHLORIDE [Concomitant]
  4. MILK OF MAGNESIA (MAGNESIUM HYDROXIDE [Concomitant]

REACTIONS (7)
  - Metabolic acidosis [None]
  - Drug administration error [None]
  - Abdominal pain [None]
  - Nausea [None]
  - Vomiting [None]
  - Weight decreased [None]
  - Refusal of treatment by patient [None]
